FAERS Safety Report 4964106-0 (Version None)
Quarter: 2006Q1

REPORT INFORMATION
  Report Type: 
  Country: None (occurrence: None)
  Receive Date: 20060330
  Receipt Date: 20060317
  Transmission Date: 20060701
  Serious: Yes (Death, Hospitalization, Other)
  Sender: FDA-Public Use
  Company Number: US200602005409

PATIENT
  Age: 56 Year
  Sex: Female

DRUGS (4)
  1. CYMBALTA [Suspect]
     Indication: FIBROMYALGIA
     Dosage: SEE IMAGE
     Dates: start: 20050101
  2. ESTRATEST [Concomitant]
  3. BENICAR  /USA/  (OLMESARTAN MEDOXOMIL) [Concomitant]
  4. IMITREX ^GLAXO WELLCOME^ (SUMATRIPTAN SUCCINATE) [Concomitant]

REACTIONS (8)
  - ANALGESIC DRUG LEVEL INCREASED [None]
  - ANIMAL BITE [None]
  - CELLULITIS [None]
  - DIALYSIS [None]
  - GENERAL PHYSICAL HEALTH DETERIORATION [None]
  - HAEMODYNAMIC INSTABILITY [None]
  - HEPATIC FAILURE [None]
  - RENAL FAILURE [None]
